FAERS Safety Report 4520487-3 (Version None)
Quarter: 2004Q4

REPORT INFORMATION
  Report Type: 
  Country: None (occurrence: None)
  Receive Date: 20041203
  Receipt Date: 20041123
  Transmission Date: 20050328
  Serious: Yes (Other)
  Sender: FDA-Public Use
  Company Number: HQWYE465915NOV04

PATIENT
  Sex: Female

DRUGS (6)
  1. PROTONIX [Suspect]
     Dosage: 40 MG 1X PER 1 DAY, ORAL
     Route: 048
  2. PROGRAF (TACTROLIMUS) [Concomitant]
  3. PREDNISONE [Concomitant]
  4. MULTIVITAMINS (ASCORBIC ACID/ERGOCALCIFEROL/FOLIC ACID/ICOTINAMIDE/PHA [Concomitant]
  5. VALCYTE [Concomitant]
  6. CELLCEPT (MYOCPHENOLATE MOFETIL) [Concomitant]

REACTIONS (1)
  - CARCINOID TUMOUR [None]
